FAERS Safety Report 12595721 (Version 1)
Quarter: 2016Q3

REPORT INFORMATION
  Report Type: Spontaneous
  Country: US (occurrence: US)
  Receive Date: 20160727
  Receipt Date: 20160727
  Transmission Date: 20161109
  Serious: No
  Sender: FDA-Public Use
  Company Number: US-GLENMARK PHARMACEUTICALS INC, USA.-2016GMK023119

PATIENT

DRUGS (3)
  1. MUPIROCIN. [Suspect]
     Active Substance: MUPIROCIN
     Indication: THERMAL BURN
     Dosage: UNK
     Route: 061
     Dates: start: 20160523, end: 20160523
  2. ASPIRIN                            /00002701/ [Concomitant]
     Active Substance: ASPIRIN
     Indication: VASCULAR GRAFT
     Dosage: 81 MG, OD
     Route: 048
     Dates: start: 2012
  3. LIPITOR [Concomitant]
     Active Substance: ATORVASTATIN CALCIUM
     Indication: VASCULAR GRAFT
     Dosage: 20 MG, OD
     Route: 048
     Dates: start: 2012

REACTIONS (3)
  - Product use issue [Unknown]
  - Application site pain [Recovered/Resolved]
  - Application site reaction [Recovered/Resolved]

NARRATIVE: CASE EVENT DATE: 20160523
